FAERS Safety Report 6889445-8 (Version None)
Quarter: 2010Q3

REPORT INFORMATION
  Report Type: 
  Country: None (occurrence: None)
  Receive Date: 20100730
  Receipt Date: 20080228
  Transmission Date: 20110219
  Serious: No
  Sender: FDA-Public Use
  Company Number: US-PFIZER INC-2008018488

PATIENT
  Sex: Male
  Weight: 67.272 kg

DRUGS (4)
  1. LIPITOR [Suspect]
     Indication: ARTERIAL THROMBOSIS
     Route: 048
     Dates: start: 20071101
  2. PLAVIX [Concomitant]
     Route: 048
     Dates: start: 20071101
  3. LEVOTHYROXINE SODIUM [Concomitant]
     Indication: THYROID DISORDER
     Route: 048
     Dates: start: 20071101
  4. ACETYLSALICYLIC ACID SRT [Concomitant]
     Route: 048
     Dates: start: 20071101

REACTIONS (2)
  - ARTHRALGIA [None]
  - MYALGIA [None]
